FAERS Safety Report 17159059 (Version 1)
Quarter: 2019Q4

REPORT INFORMATION
  Report Type: Report from Study
  Country: CA (occurrence: CA)
  Receive Date: 20191216
  Receipt Date: 20191216
  Transmission Date: 20200122
  Serious: Yes (Other)
  Sender: FDA-Public Use
  Company Number: CA-PFIZER INC-2019537115

PATIENT
  Age: 81 Year
  Sex: Male

DRUGS (12)
  1. AMLODIPINE BESILATE [Suspect]
     Active Substance: AMLODIPINE BESYLATE
     Dosage: 10 MG, UNK
  2. VENTOLINE [SALBUTAMOL SULFATE] [Suspect]
     Active Substance: ALBUTEROL SULFATE
     Dosage: 100 UG, UNK
     Route: 055
  3. PARIET [Suspect]
     Active Substance: RABEPRAZOLE SODIUM
     Dosage: 20 MG, UNK
  4. SIMBICORT TURBUHALER [Suspect]
     Active Substance: BUDESONIDE\FORMOTEROL FUMARATE
     Dosage: 200 DF, 1X/DAY
     Route: 055
  5. DOXAZOSIN MESILATE [Suspect]
     Active Substance: DOXAZOSIN MESYLATE
     Dosage: 1 MG, UNK
  6. MEPOLIZUMAB [Suspect]
     Active Substance: MEPOLIZUMAB
     Indication: ASTHMA
     Dosage: 100 MG, UNK
     Route: 042
  7. PULMICORT TURBUHALER [Suspect]
     Active Substance: BUDESONIDE
     Dosage: 200 UG, 2X/DAY
  8. ACLIDINIUM BROMIDE. [Suspect]
     Active Substance: ACLIDINIUM BROMIDE
     Dosage: 400 UG, 1X/DAY
     Route: 055
  9. CALCITRIOL. [Suspect]
     Active Substance: CALCITRIOL
     Dosage: 0.25 MG, UNK
     Route: 048
  10. ASPIRINE [Suspect]
     Active Substance: ASPIRIN
     Dosage: 81 MG, UNK
  11. IRBESARTAN. [Suspect]
     Active Substance: IRBESARTAN
     Dosage: 150 MG, UNK
  12. ROSUVASTATIN CALCIUM. [Suspect]
     Active Substance: ROSUVASTATIN CALCIUM
     Dosage: 10 MG, UNK

REACTIONS (19)
  - Carotid arteriosclerosis [Unknown]
  - Lung disorder [Unknown]
  - Renal cyst [Unknown]
  - Chronic obstructive pulmonary disease [Unknown]
  - Dry mouth [Unknown]
  - Obstruction [Unknown]
  - Pulmonary mass [Unknown]
  - Cellulitis [Unknown]
  - Chest discomfort [Unknown]
  - Dyspnoea [Unknown]
  - Inflammation [Unknown]
  - Lower respiratory tract infection [Unknown]
  - Bronchiolitis [Unknown]
  - Mycobacterium test positive [Unknown]
  - Headache [Unknown]
  - Lung diffusion test decreased [Unknown]
  - Cough [Unknown]
  - Granuloma [Unknown]
  - Productive cough [Unknown]
